FAERS Safety Report 21529642 (Version 4)
Quarter: 2023Q1

REPORT INFORMATION
  Report Type: Spontaneous
  Country: DE (occurrence: DE)
  Receive Date: 20221031
  Receipt Date: 20230106
  Transmission Date: 20230418
  Serious: Yes (Death, Other)
  Sender: FDA-Public Use
  Company Number: DE-NOVARTISPH-NVSC2022DE243829

PATIENT
  Age: 79 Year
  Sex: Female
  Weight: 62 kg

DRUGS (78)
  1. ACETYLCYSTEINE [Suspect]
     Active Substance: ACETYLCYSTEINE
     Indication: Cough
     Dosage: 3 DOSAGE FORM
     Route: 048
     Dates: start: 19950119
  2. ASPIRIN [Suspect]
     Active Substance: ASPIRIN
     Indication: Product used for unknown indication
     Dosage: UNK
     Route: 048
     Dates: start: 19950116, end: 19950124
  3. SULFAMETHOXAZOLE\TRIMETHOPRIM [Suspect]
     Active Substance: SULFAMETHOXAZOLE\TRIMETHOPRIM
     Indication: Infection
     Dosage: 2 DOSAGE FORM, QD
     Route: 048
     Dates: start: 19950122, end: 19950123
  4. BACTRIM [Suspect]
     Active Substance: SULFAMETHOXAZOLE\TRIMETHOPRIM
     Indication: Infection
     Dosage: 2 DOSAGE FORM, QD
     Route: 048
     Dates: start: 19950122, end: 19950123
  5. BACTRIM [Suspect]
     Active Substance: SULFAMETHOXAZOLE\TRIMETHOPRIM
     Dosage: 2 DOSAGE FORM, QD
     Route: 048
     Dates: start: 19950122, end: 19950123
  6. BROMAZEPAM [Suspect]
     Active Substance: BROMAZEPAM
     Indication: Sedation
     Dosage: 0.25 DOSAGE FORM
     Route: 048
     Dates: start: 19950128, end: 19950128
  7. FLUNITRAZEPAM [Suspect]
     Active Substance: FLUNITRAZEPAM
     Indication: Anaesthesia
     Dosage: UNK
     Route: 042
     Dates: start: 19950113, end: 19950113
  8. MIDAZOLAM HYDROCHLORIDE [Suspect]
     Active Substance: MIDAZOLAM HYDROCHLORIDE
     Indication: Anaesthesia
     Dosage: UNK
     Route: 042
     Dates: start: 19950113, end: 19950113
  9. VALIUM [Suspect]
     Active Substance: DIAZEPAM
     Indication: Pain
     Dosage: UNK
     Route: 065
  10. VALIUM [Suspect]
     Active Substance: DIAZEPAM
     Dosage: UNK
     Route: 065
  11. METOCLOPRAMIDE HYDROCHLORIDE [Suspect]
     Active Substance: METOCLOPRAMIDE HYDROCHLORIDE
     Indication: Nausea
     Dosage: 60 DRP, QD (1/12 MILLILITRE)
     Route: 048
     Dates: start: 19950129
  12. METOCLOPRAMIDE HYDROCHLORIDE [Suspect]
     Active Substance: METOCLOPRAMIDE HYDROCHLORIDE
     Dosage: UNK
     Route: 065
  13. TRAMADOL [Suspect]
     Active Substance: TRAMADOL
     Indication: Pain
     Dosage: UNK
     Route: 048
     Dates: start: 19950126, end: 19950126
  14. DIGITOXIN [Suspect]
     Active Substance: DIGITOXIN
     Indication: Cardiac failure
     Dosage: 1 DOSAGE FORM, QD (NOT GIVEN FROM 12 JAN TO 22 JAN 95)
     Route: 048
     Dates: start: 19950124, end: 19950125
  15. DIGITOXIN [Suspect]
     Active Substance: DIGITOXIN
     Indication: Left ventricular failure
     Dosage: 1 DOSAGE FORM, QD (ONE INJECTION EACH ON 13 AND 14 JAN 95)
     Route: 042
     Dates: start: 19950113, end: 19950114
  16. DOPAMINE HYDROCHLORIDE [Suspect]
     Active Substance: DOPAMINE HYDROCHLORIDE
     Indication: Cardiovascular disorder
     Dosage: UNK (3 ML/H)
     Route: 042
     Dates: start: 19950113, end: 19950115
  17. ZINACEF [Suspect]
     Active Substance: CEFUROXIME SODIUM
     Indication: Infection
     Dosage: 3 DOSAGE FORM
     Route: 042
     Dates: start: 19950124, end: 19950131
  18. POTASSIUM CARBONATE\POTASSIUM CITRATE [Suspect]
     Active Substance: POTASSIUM CARBONATE\POTASSIUM CITRATE
     Indication: Blood potassium decreased
     Dosage: UNK
     Route: 048
     Dates: start: 19950119, end: 19950120
  19. POTASSIUM CARBONATE\POTASSIUM CITRATE [Suspect]
     Active Substance: POTASSIUM CARBONATE\POTASSIUM CITRATE
     Dosage: UNK
     Route: 065
     Dates: start: 19950123, end: 19950127
  20. POTASSIUM CARBONATE\POTASSIUM CITRATE [Suspect]
     Active Substance: POTASSIUM CARBONATE\POTASSIUM CITRATE
     Dosage: UNK
     Route: 048
     Dates: start: 19950123, end: 19950127
  21. LASIX [Suspect]
     Active Substance: FUROSEMIDE
     Indication: Polyuria
     Dosage: UNK
     Route: 042
     Dates: start: 19950113, end: 19950115
  22. LASIX [Suspect]
     Active Substance: FUROSEMIDE
     Indication: Oedema
     Dosage: 1 DOSAGE FORM, QD
     Route: 042
     Dates: end: 19950115
  23. LASIX [Suspect]
     Active Substance: FUROSEMIDE
     Indication: Oedema
     Dosage: 1 DOSAGE FORM, QD
     Route: 048
     Dates: start: 19950112
  24. LASIX [Suspect]
     Active Substance: FUROSEMIDE
     Indication: Polyuria
  25. BUTYLSCOPOLAMINE BROMIDE [Suspect]
     Active Substance: BUTYLSCOPOLAMINE BROMIDE
     Indication: Pain
     Dosage: UNK
     Route: 054
     Dates: start: 19950130, end: 19950130
  26. OXAZEPAM [Suspect]
     Active Substance: OXAZEPAM
     Indication: Sleep disorder
     Dosage: UNK
     Route: 048
     Dates: start: 19950121, end: 19950121
  27. BISOLVON [Suspect]
     Active Substance: BROMHEXINE HYDROCHLORIDE
     Indication: Cough
     Dosage: UNK
     Route: 048
     Dates: start: 19950116, end: 19950116
  28. ALLOPURINOL [Suspect]
     Active Substance: ALLOPURINOL
     Indication: Hyperuricaemia
     Dosage: UNK
     Route: 048
     Dates: start: 19950126
  29. FERROUS GLYCINE SULFATE [Suspect]
     Active Substance: FERROUS GLYCINE SULFATE
     Indication: Iron deficiency
     Dosage: 2 DOSAGE FORM, QD
     Route: 065
     Dates: start: 19950119
  30. FERROUS GLYCINE SULFATE [Suspect]
     Active Substance: FERROUS GLYCINE SULFATE
     Dosage: 2 DOSAGE FORM, QD
     Route: 065
     Dates: start: 19950119
  31. FERROUS GLYCINE SULFATE [Suspect]
     Active Substance: FERROUS GLYCINE SULFATE
     Dosage: 2 DOSAGE FORM, QD
     Route: 065
     Dates: start: 19950119
  32. FERROUS GLYCINE SULFATE [Suspect]
     Active Substance: FERROUS GLYCINE SULFATE
     Dosage: UNK
     Route: 065
  33. FLUNITRAZEPAM [Suspect]
     Active Substance: FLUNITRAZEPAM
     Indication: Anaesthesia
     Dosage: UNK
     Route: 042
     Dates: start: 19950113, end: 19950113
  34. BELOC [Concomitant]
     Indication: Hypertonia
     Dosage: UNK
     Route: 048
     Dates: start: 19950112
  35. CLEMASTINE FUMARATE [Concomitant]
     Active Substance: CLEMASTINE FUMARATE
     Indication: Hypersensitivity
     Dosage: UNK
     Route: 042
     Dates: start: 19950202
  36. CLEMASTINE FUMARATE [Concomitant]
     Active Substance: CLEMASTINE FUMARATE
     Dosage: 4 DOSAGE FORM, QD
     Route: 042
     Dates: start: 19950203, end: 19950203
  37. NITROLINGUAL [Concomitant]
     Active Substance: NITROGLYCERIN
     Indication: Cardiac failure
     Dosage: UNK
     Route: 042
     Dates: start: 19950113, end: 19950113
  38. ENFLURAN [Concomitant]
     Indication: Anaesthesia
     Dosage: UNK, (INHALATION VAPOUR, SOLUTION)
     Route: 065
     Dates: start: 19950113, end: 19950113
  39. ALBUMIN HUMAN [Concomitant]
     Active Substance: ALBUMIN HUMAN
     Indication: Hypovolaemia
     Dosage: UNK
     Route: 042
     Dates: start: 19950113, end: 19950113
  40. DOBUTREX [Concomitant]
     Active Substance: DOBUTAMINE HYDROCHLORIDE
     Indication: Cardiovascular disorder
     Dosage: UNK
     Route: 042
     Dates: start: 19950114, end: 19950115
  41. POTASSIUM CHLORIDE [Concomitant]
     Active Substance: POTASSIUM CHLORIDE
     Indication: Blood potassium decreased
     Dosage: UNK
     Route: 042
     Dates: start: 19950113, end: 19950113
  42. ETHACRYNIC ACID [Concomitant]
     Active Substance: ETHACRYNIC ACID
     Indication: Oedema
     Dosage: UNK
     Route: 048
     Dates: start: 19950116, end: 19950116
  43. ETHACRYNIC ACID [Concomitant]
     Active Substance: ETHACRYNIC ACID
     Indication: Polyuria
     Dosage: UNK (GIVEN ON 13 JAN AND ON 15 JAN 1995)
     Route: 042
     Dates: start: 19950113, end: 19950115
  44. CIPROFLOXACIN HYDROCHLORIDE [Concomitant]
     Active Substance: CIPROFLOXACIN HYDROCHLORIDE
     Indication: Infection
     Dosage: UNK
     Route: 048
     Dates: start: 19950203, end: 19950203
  45. CALCIUM [Concomitant]
     Active Substance: CALCIUM
     Indication: Blood calcium decreased
     Dosage: UNK
     Route: 042
     Dates: start: 19950113, end: 19950113
  46. NOVODIGAL [Concomitant]
     Indication: Cardiac failure
     Dosage: 1 DOSAGE FORM, QD (NOT GIVEN FROM 12 JAN TO 16 JAN 95)
     Route: 048
     Dates: start: 19950107
  47. EUCALYPTUS OIL [Concomitant]
     Active Substance: EUCALYPTUS OIL
     Indication: Prophylaxis
     Dosage: UNK
     Route: 062
  48. POTASSIUM CHLORIDE [Concomitant]
     Active Substance: POTASSIUM CHLORIDE
     Indication: Hypokalaemia
     Dosage: UNK
     Route: 048
     Dates: start: 19950113, end: 19950201
  49. BUPRENORPHINE HYDROCHLORIDE [Concomitant]
     Active Substance: BUPRENORPHINE HYDROCHLORIDE
     Indication: Pain
     Dosage: UNK
     Route: 048
  50. DILTIAZEM [Concomitant]
     Active Substance: DILTIAZEM
     Indication: Coronary artery disease
     Dosage: UNK
     Route: 042
     Dates: start: 19950113, end: 19950113
  51. ADALAT [Concomitant]
     Active Substance: NIFEDIPINE
     Indication: Hypertonia
     Dosage: 2 DOSAGE FORM, QD
     Route: 048
     Dates: start: 19950106, end: 19950112
  52. GELAFUNDIN [Concomitant]
     Indication: Hypovolaemia
     Dosage: UNK
     Route: 042
     Dates: start: 19950113, end: 19950113
  53. PERFAN [Concomitant]
     Active Substance: ENOXIMONE
     Indication: Cardiac failure
     Dosage: UNK
     Route: 065
     Dates: start: 19950113, end: 19950113
  54. TRASYLOL [Concomitant]
     Active Substance: APROTININ
     Indication: Coagulopathy
     Dosage: UNK
     Route: 042
     Dates: start: 19950113, end: 19950113
  55. ISOSORBIDE DINITRATE [Concomitant]
     Active Substance: ISOSORBIDE DINITRATE
     Indication: Coronary artery disease
     Dosage: UNK (4 ML/H)
     Route: 042
     Dates: start: 19950112, end: 19950112
  56. DEXTROSE [Concomitant]
     Active Substance: DEXTROSE
     Indication: Parenteral nutrition
     Dosage: UNK
     Route: 042
     Dates: start: 19950114, end: 19950114
  57. INSULIN NOS [Concomitant]
     Active Substance: INSULIN NOS
     Indication: Blood glucose increased
     Dosage: UNK
     Route: 042
     Dates: start: 19950113, end: 19950115
  58. HEPARIN [Concomitant]
     Active Substance: HEPARIN SODIUM
     Indication: Thrombosis prophylaxis
     Dosage: 15000 IU, QD (NOT GIVEN FROM 28-30 JAN 95)
     Route: 058
     Dates: start: 19950109
  59. HEPARIN [Concomitant]
     Active Substance: HEPARIN SODIUM
     Dosage: UNK
     Route: 065
     Dates: start: 19950109, end: 19950109
  60. ANTITHROMBIN III HUMAN [Concomitant]
     Active Substance: ANTITHROMBIN III HUMAN
     Indication: Coagulopathy
     Dosage: UNK
     Route: 042
     Dates: start: 19950113, end: 19950113
  61. CAPTOPRIL [Concomitant]
     Active Substance: CAPTOPRIL
     Indication: Cardiac failure
     Dosage: UNK
     Route: 065
     Dates: start: 19950112, end: 19950112
  62. MANNITOL [Concomitant]
     Active Substance: MANNITOL
     Indication: Polyuria
     Dosage: UNK
     Route: 042
     Dates: start: 19950112, end: 19950115
  63. SUPRARENIN [Concomitant]
     Active Substance: EPINEPHRINE
     Indication: Cardiovascular disorder
     Dosage: UNK
     Route: 065
     Dates: start: 19950113, end: 19950113
  64. LEVOTHYROXINE SODIUM [Concomitant]
     Active Substance: LEVOTHYROXINE SODIUM
     Indication: Thyroid disorder
     Dosage: 1 DOSAGE FORM, QD (100) (NOT GIVEN FROM12 JAN TO 16 JAN 95)
     Route: 048
  65. FENTANYL [Concomitant]
     Active Substance: FENTANYL
     Indication: Anaesthesia
     Dosage: UNK
     Route: 042
     Dates: start: 19950113, end: 19950113
  66. PANCURONIUM [Concomitant]
     Active Substance: PANCURONIUM
     Indication: Anaesthesia
     Dosage: UNK
     Route: 042
     Dates: start: 19950113, end: 19950113
  67. SUFENTA [Concomitant]
     Active Substance: SUFENTANIL CITRATE
     Indication: Anaesthesia
     Dosage: UNK
     Route: 042
     Dates: start: 19950113, end: 19950113
  68. NOREPINEPHRINE HYDROCHLORIDE, (+/-)- [Concomitant]
     Active Substance: NOREPINEPHRINE HYDROCHLORIDE, (+/-)-
     Indication: Cardiovascular disorder
     Dosage: UNK
     Route: 042
     Dates: start: 19950113, end: 19950113
  69. PREDNISOLONE SODIUM SUCCINATE [Concomitant]
     Active Substance: PREDNISOLONE SODIUM SUCCINATE
     Indication: Hypersensitivity
     Dosage: UNK
     Route: 042
     Dates: start: 19950202
  70. PIRITRAMIDE [Concomitant]
     Active Substance: PIRITRAMIDE
     Indication: Pain
     Dosage: UNK (ADMINISTERED ON 13 JAN AND ON 15 JAN 1995)
     Route: 042
     Dates: start: 19950113, end: 19950115
  71. SUCRALFATE [Concomitant]
     Active Substance: SUCRALFATE
     Indication: Prophylaxis
     Dosage: 3 DOSAGE FORM, QD
     Route: 065
     Dates: start: 19950119, end: 19950119
  72. MAGNESIUM ASPARTATE\POTASSIUM ASPARTATE [Concomitant]
     Active Substance: MAGNESIUM ASPARTATE\POTASSIUM ASPARTATE
     Indication: Electrolyte imbalance
     Dosage: UNK
     Route: 042
     Dates: start: 19950113, end: 19950113
  73. SODIUM CHLORIDE [Concomitant]
     Active Substance: SODIUM CHLORIDE
     Indication: Hyponatraemia
     Dosage: UNK
     Route: 042
     Dates: start: 19950115, end: 19950115
  74. RINGERS SOLUTION [Concomitant]
     Active Substance: CALCIUM CHLORIDE\POTASSIUM CHLORIDE\SODIUM CHLORIDE
     Indication: Product used for unknown indication
     Dosage: UNK
     Route: 042
     Dates: start: 19950113, end: 19950201
  75. FRUCTOSE\INSULIN BEEF [Concomitant]
     Active Substance: FRUCTOSE\INSULIN BEEF
     Indication: Blood glucose increased
     Dosage: UNK (50-100 IU/H)
     Route: 042
     Dates: start: 19950113, end: 19950115
  76. BELOC MITE [Concomitant]
     Indication: Hypertension
     Dosage: 2 DOSAGE FORM, QD
     Route: 048
     Dates: start: 19950112, end: 19950112
  77. DEXTROSE [Concomitant]
     Active Substance: DEXTROSE
     Indication: Parenteral nutrition
     Dosage: UNK
     Route: 065
     Dates: start: 19950113, end: 19950113
  78. CIPROBAY [Concomitant]
     Indication: Infection
     Dosage: UNK
     Route: 048
     Dates: start: 19950203, end: 19950203

REACTIONS (12)
  - Toxic epidermal necrolysis [Fatal]
  - Circulatory collapse [Unknown]
  - Cardiac failure [Unknown]
  - Rash [Unknown]
  - Constipation [Unknown]
  - Lymphocytosis [Unknown]
  - Gamma-glutamyltransferase increased [Unknown]
  - Conjunctivitis [Unknown]
  - Blood creatinine increased [Unknown]
  - Blood lactate dehydrogenase increased [Unknown]
  - Pruritus [Unknown]
  - Pyrexia [Unknown]

NARRATIVE: CASE EVENT DATE: 19950130
